FAERS Safety Report 9026770 (Version 1)
Quarter: 2013Q1

REPORT INFORMATION
  Report Type: Spontaneous
  Country: US (occurrence: US)
  Receive Date: 20130123
  Receipt Date: 20130123
  Transmission Date: 20140127
  Serious: Yes (Hospitalization)
  Sender: FDA-Public Use
  Company Number: US-BAYER-2013-008067

PATIENT
  Age: 19 Year
  Sex: Female

DRUGS (5)
  1. YASMIN [Suspect]
  2. AMOXICILLIN [Concomitant]
     Indication: SINUSITIS
  3. ENDOCET [Concomitant]
     Indication: MYALGIA
  4. FLEXERIL [Concomitant]
     Indication: MYALGIA
  5. ORAL CONTRACEPTIVE NOS [Concomitant]
     Indication: ACNE

REACTIONS (1)
  - Pulmonary embolism [None]
